FAERS Safety Report 15126505 (Version 3)
Quarter: 2018Q3

REPORT INFORMATION
  Report Type: Report from Study
  Country: US (occurrence: US)
  Receive Date: 20180710
  Receipt Date: 20180723
  Transmission Date: 20181010
  Serious: Yes (Hospitalization, Other)
  Sender: FDA-Public Use
  Company Number: US-SHIRE-US201824212

PATIENT
  Age: 64 Year
  Sex: Female

DRUGS (2)
  1. HUMAN NORMAL IMMUNOGLOBULIN; LIQUID [Suspect]
     Active Substance: HUMAN IMMUNOGLOBULIN G
     Indication: PRIMARY IMMUNODEFICIENCY SYNDROME
     Route: 058
  2. HUMAN NORMAL IMMUNOGLOBULIN; LIQUID [Suspect]
     Active Substance: HUMAN IMMUNOGLOBULIN G
     Dosage: UNK
     Route: 042

REACTIONS (11)
  - Paraesthesia [Unknown]
  - Diabetes mellitus [Unknown]
  - Burning sensation [Unknown]
  - Cough [Unknown]
  - Asthma [Not Recovered/Not Resolved]
  - Inappropriate schedule of drug administration [Unknown]
  - Sputum discoloured [Unknown]
  - Malaise [Unknown]
  - Hypersensitivity [Unknown]
  - Chest pain [Unknown]
  - Pyrexia [Recovering/Resolving]

NARRATIVE: CASE EVENT DATE: 20180702
